FAERS Safety Report 5932868-1 (Version None)
Quarter: 2008Q4

REPORT INFORMATION
  Report Type: 
  Country: None (occurrence: None)
  Receive Date: 20081023
  Receipt Date: 20081015
  Transmission Date: 20090506
  Serious: Yes (Other)
  Sender: FDA-Public Use
  Company Number: GXKR2008GB09849

PATIENT
  Age: 70 Year
  Sex: Female
  Weight: 73 kg

DRUGS (4)
  1. DOXAZOSIN MESYLATE [Suspect]
     Indication: ESSENTIAL HYPERTENSION
     Dosage: 1 DF, QD, ORAL
     Route: 048
     Dates: start: 20070627, end: 20081002
  2. ATENOLOL [Concomitant]
  3. BENDROFLUMETHIAZIDE  (BENDROFLUMETHIAZIDE) [Concomitant]
  4. TRAMADOL HCL [Concomitant]

REACTIONS (2)
  - GINGIVAL SWELLING [None]
  - TOOTH LOSS [None]
